FAERS Safety Report 5836984-4 (Version None)
Quarter: 2008Q3

REPORT INFORMATION
  Report Type: 
  Country: None (occurrence: None)
  Receive Date: 20080806
  Receipt Date: 20080422
  Transmission Date: 20090109
  Serious: Yes (Hospitalization, Other)
  Sender: FDA-Public Use
  Company Number: WAES 0803USA01204

PATIENT
  Age: 30 Year
  Sex: Female
  Weight: 58.9676 kg

DRUGS (2)
  1. JANUMET [Suspect]
     Indication: DIABETES MELLITUS
     Dosage: 1000MG/50
     Dates: start: 20071201, end: 20071201
  2. THERAPY UNSPECIFIED [Concomitant]

REACTIONS (2)
  - HYPOGLYCAEMIA [None]
  - UNDERDOSE [None]
